FAERS Safety Report 6393552-6 (Version None)
Quarter: 2009Q4

REPORT INFORMATION
  Report Type: 
  Country: None (occurrence: None)
  Receive Date: 20091008
  Receipt Date: 20091005
  Transmission Date: 20100525
  Serious: Yes (Hospitalization)
  Sender: FDA-Public Use
  Company Number: B0596630A

PATIENT
  Sex: Male
  Weight: 67.3 kg

DRUGS (19)
  1. MELPHALAN [Suspect]
     Indication: MULTIPLE MYELOMA
     Route: 048
     Dates: start: 20080512, end: 20080515
  2. BLINDED TRIAL MEDICATION [Suspect]
     Indication: MULTIPLE MYELOMA
     Route: 048
     Dates: start: 20080512, end: 20080526
  3. PREDNISONE [Suspect]
     Indication: MULTIPLE MYELOMA
     Route: 048
     Dates: start: 20080512, end: 20080515
  4. PAMIDRONATE DISODIUM [Concomitant]
     Indication: OSTEOPOROSIS
     Dates: start: 20080316
  5. BISOPROLOL [Concomitant]
     Dates: start: 20061212
  6. LOSARTAN [Concomitant]
     Dates: start: 20080414
  7. OXAZEPAM [Concomitant]
  8. ACETAMINOPHEN [Concomitant]
     Indication: ANALGESIC THERAPY
  9. OXYCODON [Concomitant]
     Indication: ANALGESIC THERAPY
  10. FUROSEMIDE [Concomitant]
  11. ACETYLSALICYLIC ACID [Concomitant]
  12. ZOPIKLON [Concomitant]
  13. METOCLOPRAMIDE [Concomitant]
  14. HERBAL EXTRACT [Concomitant]
  15. MAGNESIUM HYDROXIDE TAB [Concomitant]
     Indication: MAGNESIUM DEFICIENCY
  16. POTASSIUM CHLORIDE [Concomitant]
  17. LACTULOSE [Concomitant]
  18. CIPROFLOXACIN HYDROCHLORIDE [Concomitant]
  19. PREDNISOLONE [Concomitant]

REACTIONS (8)
  - BLISTER [None]
  - BLOOD CALCIUM DECREASED [None]
  - C-REACTIVE PROTEIN INCREASED [None]
  - ERYTHEMA [None]
  - HAEMOGLOBIN DECREASED [None]
  - NAUSEA [None]
  - PLATELET COUNT INCREASED [None]
  - URINARY TRACT INFECTION [None]
